FAERS Safety Report 4497445-0 (Version None)
Quarter: 2004Q4

REPORT INFORMATION
  Report Type: 
  Country: None (occurrence: None)
  Receive Date: 20041110
  Receipt Date: 20041102
  Transmission Date: 20050328
  Serious: Yes (Hospitalization, Other)
  Sender: FDA-Public Use
  Company Number: US-MERCK-0411USA00445

PATIENT
  Age: 72 Year
  Sex: Female

DRUGS (2)
  1. FOSAMAX [Suspect]
     Indication: OSTEOPOROSIS
     Route: 048
  2. REMINYL [Concomitant]
     Route: 065

REACTIONS (1)
  - CHEST PAIN [None]
